FAERS Safety Report 9426906 (Version 1)
Quarter: 2013Q3

REPORT INFORMATION
  Report Type: Report from Study
  Country: US (occurrence: US)
  Receive Date: 20130730
  Receipt Date: 20130730
  Transmission Date: 20140515
  Serious: Yes (Death)
  Sender: FDA-Public Use
  Company Number: US-ASTELLAS-2013US007991

PATIENT
  Sex: Female

DRUGS (1)
  1. ERLOTINIB TABLET [Suspect]
     Indication: METASTATIC GASTRIC CANCER
     Dosage: UNK
     Route: 065
     Dates: start: 20130315

REACTIONS (2)
  - Off label use [Unknown]
  - Death [Fatal]
